FAERS Safety Report 5626806-9 (Version None)
Quarter: 2008Q1

REPORT INFORMATION
  Report Type: 
  Country: None (occurrence: None)
  Receive Date: 20080214
  Receipt Date: 20080212
  Transmission Date: 20080703
  Serious: Yes (Other)
  Sender: FDA-Public Use
  Company Number: US-PFIZER INC-2008013526

PATIENT
  Sex: Female
  Weight: 68 kg

DRUGS (8)
  1. XALATAN [Suspect]
     Indication: GLAUCOMA
  2. PREVACID [Concomitant]
  3. NORVASC [Concomitant]
  4. ACCURETIC [Concomitant]
  5. TOPROL [Concomitant]
  6. ZOCOR [Concomitant]
  7. SYNTHROID [Concomitant]
  8. ACETYLSALICYLIC ACID SRT [Concomitant]

REACTIONS (2)
  - CATARACT OPERATION [None]
  - DRUG ADMINISTRATION ERROR [None]
